FAERS Safety Report 5232673-8 (Version None)
Quarter: 2007Q1

REPORT INFORMATION
  Report Type: 
  Country: None (occurrence: None)
  Receive Date: 20070206
  Receipt Date: 20070206
  Transmission Date: 20070707
  Serious: Yes (Hospitalization)
  Sender: FDA-Public Use
  Company Number: None

PATIENT
  Sex: Female
  Weight: 68.9467 kg

DRUGS (2)
  1. IBUPROFEN [Suspect]
     Indication: ENDODONTIC PROCEDURE
     Dosage: 1 TABLET 4HRS
     Dates: start: 20070111, end: 20070121
  2. AMOXICILLIN [Suspect]
     Indication: ENDODONTIC PROCEDURE
     Dosage: 1 TABLET 3 TIMES A DAY
     Dates: start: 20070111, end: 20070121

REACTIONS (5)
  - ABDOMINAL PAIN UPPER [None]
  - DRUG DISPENSING ERROR [None]
  - HEART RATE IRREGULAR [None]
  - INSOMNIA [None]
  - WRONG DRUG ADMINISTERED [None]
